FAERS Safety Report 19932695 (Version 1)
Quarter: 2021Q4

REPORT INFORMATION
  Report Type: Spontaneous
  Country: US (occurrence: US)
  Receive Date: 20211007
  Receipt Date: 20211007
  Transmission Date: 20220303
  Serious: Yes (Death)
  Sender: FDA-Public Use
  Company Number: None

PATIENT
  Age: 71 Year
  Sex: Male
  Weight: 67 kg

DRUGS (1)
  1. ATEZOLIZUMAB [Suspect]
     Active Substance: ATEZOLIZUMAB
     Indication: Small cell lung cancer extensive stage
     Dosage: ?          OTHER FREQUENCY:EVERY 3 WEEKS;
     Route: 040
     Dates: start: 20210105, end: 20210415

REACTIONS (8)
  - Pneumonitis [None]
  - Cardiac failure [None]
  - Dyspnoea paroxysmal nocturnal [None]
  - Orthopnoea [None]
  - Brain natriuretic peptide increased [None]
  - Troponin increased [None]
  - Immune-mediated myocarditis [None]
  - Condition aggravated [None]

NARRATIVE: CASE EVENT DATE: 20210416
